FAERS Safety Report 8496191-6 (Version None)
Quarter: 2012Q3

REPORT INFORMATION
  Report Type: 
  Country: None (occurrence: None)
  Receive Date: 20120709
  Receipt Date: 20120706
  Transmission Date: 20120928
  Serious: Yes (Death, Other)
  Sender: FDA-Public Use
  Company Number: PHHY2012GB048743

PATIENT
  Sex: Female
  Weight: 95 kg

DRUGS (4)
  1. CAPECITABINE [Concomitant]
     Indication: BREAST CANCER
     Dosage: 2500 MG, BID
     Route: 048
     Dates: start: 20111117, end: 20111229
  2. AVASTIN [Suspect]
     Indication: BREAST CANCER METASTATIC
     Route: 042
     Dates: start: 20111117, end: 20111229
  3. PACLITAXEL [Suspect]
     Indication: BREAST CANCER METASTATIC
  4. RADIOTHERAPY [Concomitant]

REACTIONS (4)
  - NEUROPATHY PERIPHERAL [None]
  - METASTASES TO CENTRAL NERVOUS SYSTEM [None]
  - PULMONARY EMBOLISM [None]
  - CIRCULATORY COLLAPSE [None]
